FAERS Safety Report 15146038 (Version 2)
Quarter: 2018Q4

REPORT INFORMATION
  Report Type: Spontaneous
  Country: US (occurrence: US)
  Receive Date: 20180714
  Receipt Date: 20181005
  Transmission Date: 20190204
  Serious: No
  Sender: FDA-Public Use
  Company Number: US-JNJFOC-20180626849

PATIENT
  Sex: Male

DRUGS (2)
  1. ERLEADA [Suspect]
     Active Substance: APALUTAMIDE
     Indication: PRODUCT USED FOR UNKNOWN INDICATION
     Route: 048
     Dates: start: 20180418
  2. ERLEADA [Suspect]
     Active Substance: APALUTAMIDE
     Indication: PRODUCT USED FOR UNKNOWN INDICATION
     Route: 048

REACTIONS (1)
  - Vomiting [Unknown]
